FAERS Safety Report 25152874 (Version 2)
Quarter: 2025Q2

REPORT INFORMATION
  Report Type: Spontaneous
  Country: DE (occurrence: DE)
  Receive Date: 20250403
  Receipt Date: 20250630
  Transmission Date: 20250717
  Serious: Yes (Other)
  Sender: BRISTOL-MYERS SQUIBB COMPANY
  Company Number: DE-BRISTOL-MYERS SQUIBB COMPANY-2025-045800

PATIENT
  Sex: Male

DRUGS (2)
  1. NIVOLUMAB [Suspect]
     Active Substance: NIVOLUMAB
     Indication: Malignant melanoma stage IV
     Dates: start: 202409, end: 202411
  2. IPILIMUMAB [Suspect]
     Active Substance: IPILIMUMAB
     Indication: Malignant melanoma stage IV
     Dates: start: 202409, end: 202411

REACTIONS (5)
  - Paraneoplastic encephalomyelitis [Recovered/Resolved]
  - Lymphocytic hypophysitis [Recovered/Resolved]
  - Confusional state [Unknown]
  - Encephalitis autoimmune [Recovered/Resolved]
  - Personality change [Recovered/Resolved]

NARRATIVE: CASE EVENT DATE: 20250101
